FAERS Safety Report 7260316-0 (Version None)
Quarter: 2011Q1

REPORT INFORMATION
  Report Type: 
  Country: None (occurrence: None)
  Receive Date: 20110130
  Receipt Date: 20101019
  Transmission Date: 20110831
  Serious: Yes (Hospitalization)
  Sender: FDA-Public Use
  Company Number: US-ABBOTT-10P-163-0679547-00

PATIENT
  Sex: Male
  Weight: 68.1 kg

DRUGS (3)
  1. NEXIUM [Concomitant]
     Indication: PROPHYLAXIS AGAINST GASTROINTESTINAL ULCER
  2. NAPROSYN [Concomitant]
     Indication: PAIN
     Dosage: AS NEEDED
  3. HUMIRA [Suspect]
     Indication: ANKYLOSING SPONDYLITIS
     Dates: start: 20090401, end: 20100914

REACTIONS (4)
  - FURUNCLE [None]
  - STAPHYLOCOCCAL INFECTION [None]
  - MUSCULOSKELETAL PAIN [None]
  - PRURITUS [None]
